FAERS Safety Report 7120973-6 (Version None)
Quarter: 2010Q4

REPORT INFORMATION
  Report Type: 
  Country: None (occurrence: None)
  Receive Date: 20101124
  Receipt Date: 20100322
  Transmission Date: 20110411
  Serious: No
  Sender: FDA-Public Use
  Company Number: US-PFIZER INC-2010036784

PATIENT
  Sex: Male
  Weight: 147.39 kg

DRUGS (4)
  1. TIKOSYN [Suspect]
     Indication: TACHYCARDIA
     Dosage: 250 MG 2 CAPSULES IN MORNING, 250 MG 1 CAPSULE IN AFTERNOON AND 250 MG 2 CAPSULES IN THE EVENING
     Route: 048
     Dates: start: 20090101
  2. TIKOSYN [Suspect]
     Indication: ATRIAL FIBRILLATION
  3. ATENOLOL [Concomitant]
     Indication: TACHYCARDIA
     Dosage: 25 MG, 2X/DAY
     Route: 048
  4. ATENOLOL [Concomitant]
     Indication: ATRIAL FIBRILLATION

REACTIONS (1)
  - SEASONAL ALLERGY [None]
